FAERS Safety Report 25018242 (Version 1)
Quarter: 2025Q1

REPORT INFORMATION
  Report Type: Spontaneous
  Country: CN (occurrence: CN)
  Receive Date: 20250227
  Receipt Date: 20250227
  Transmission Date: 20250409
  Serious: Yes (Other)
  Sender: MERCK SHARP & DOHME LLC
  Company Number: CN-009507513-2256902

PATIENT
  Age: 79 Year
  Sex: Female
  Weight: 55 kg

DRUGS (2)
  1. INVANZ [Suspect]
     Active Substance: ERTAPENEM SODIUM
     Indication: Cholecystitis acute
     Dosage: 1 G, QD
     Route: 041
     Dates: start: 20241209, end: 20241210
  2. Sodium Chloride Injection 100 mL [Concomitant]
     Dosage: 100 ML, 1 TIME A DAY
     Route: 041
     Dates: start: 20241209, end: 20241210

REACTIONS (3)
  - Dementia [Recovering/Resolving]
  - Disorganised speech [Recovering/Resolving]
  - Product use in unapproved indication [Unknown]

NARRATIVE: CASE EVENT DATE: 20241209
